FAERS Safety Report 5590855-X (Version None)
Quarter: 2008Q1

REPORT INFORMATION
  Report Type: 
  Country: None (occurrence: None)
  Receive Date: 20080110
  Receipt Date: 20071228
  Transmission Date: 20080703
  Serious: Yes (Other)
  Sender: FDA-Public Use
  Company Number: RENA-11632

PATIENT
  Age: 56 Year
  Sex: Male
  Weight: 73 kg

DRUGS (14)
  1. RENAGEL [Suspect]
     Indication: HYPERPHOSPHATAEMIA
     Dosage: 1 G, TID, ORAL
     Route: 048
     Dates: start: 20051109, end: 20051121
  2. CORINAE L (NIFEDIPINE) [Concomitant]
  3. ENALAPRIL MALEATE [Concomitant]
  4. DIOVAN [Concomitant]
  5. TENORMIN [Concomitant]
  6. ALFAROL (ALFACALCIDOL) [Concomitant]
  7. DOXAZOSIN MESYLATE [Concomitant]
  8. RIZE (CLOTIAZEPAM) [Concomitant]
  9. SENNARIDE (SENNOSIDE A+B) [Concomitant]
  10. EPOGIN (EPOETIN BETA) [Concomitant]
  11. LEVOTHYROXINE SODIUM [Concomitant]
  12. LEVOTHYROXINE SODIUM [Concomitant]
  13. LEVOTHYROXINE SODIUM [Concomitant]
  14. CALCIUM CARBONATE (CALCIUM CARBONATE) [Concomitant]

REACTIONS (5)
  - DRUG INTERACTION [None]
  - HYPERTENSION [None]
  - HYPOTHYROIDISM [None]
  - TACHYPHYLAXIS [None]
  - WEIGHT DECREASED [None]
